FAERS Safety Report 7934591-0 (Version None)
Quarter: 2011Q4

REPORT INFORMATION
  Report Type: 
  Country: None (occurrence: None)
  Receive Date: 20111122
  Receipt Date: 20110915
  Transmission Date: 20120403
  Serious: No
  Sender: FDA-Public Use
  Company Number: US-BAYER-2011-090973

PATIENT
  Age: 61 Year
  Sex: Female
  Weight: 84 kg

DRUGS (6)
  1. METFORMIN HCL [Concomitant]
  2. SIMVASTATIN [Concomitant]
  3. GLIPIZIDE [Concomitant]
  4. FISH OIL [Concomitant]
  5. ALEVE (CAPLET) [Suspect]
     Indication: PAIN
     Dosage: 2 DF, QD
     Route: 048
     Dates: start: 20110801, end: 20110901
  6. LISINOPRIL [Concomitant]

REACTIONS (1)
  - PAIN [None]
